FAERS Safety Report 9759162 (Version 5)
Quarter: 2015Q3

REPORT INFORMATION
  Report Type: Spontaneous
  Country: US (occurrence: US)
  Receive Date: 20131216
  Receipt Date: 20150709
  Transmission Date: 20151125
  Serious: Yes (Congenital Anomaly, Other)
  Sender: FDA-Public Use
  Company Number: US-ELI_LILLY_AND_COMPANY-US201312003268

PATIENT

DRUGS (1)
  1. PROZAC [Suspect]
     Active Substance: FLUOXETINE HYDROCHLORIDE
     Indication: PRODUCT USED FOR UNKNOWN INDICATION
     Dosage: 1 DF, UNKNOWN
     Route: 064

REACTIONS (10)
  - Nodal rhythm [Recovered/Resolved]
  - Aortic valve incompetence [Unknown]
  - Transposition of the great vessels [Recovered/Resolved]
  - Bradycardia [Recovered/Resolved]
  - Ventricular hypertrophy [Recovered/Resolved]
  - Pulmonary artery stenosis congenital [Recovered/Resolved]
  - Cardiomegaly [Recovered/Resolved]
  - Pulmonary valve incompetence [Unknown]
  - Foetal exposure timing unspecified [Unknown]
  - Tricuspid valve incompetence [Unknown]
